FAERS Safety Report 7211209-6 (Version None)
Quarter: 2010Q4

REPORT INFORMATION
  Report Type: 
  Country: None (occurrence: None)
  Receive Date: 20101221
  Receipt Date: 20101216
  Transmission Date: 20110411
  Serious: Yes (Other)
  Sender: FDA-Public Use
  Company Number: AEDEU201000445

PATIENT
  Age: 41 Year
  Sex: Male

DRUGS (1)
  1. GAMUNEX [Suspect]
     Indication: POLYNEUROPATHY
     Dosage: 20 GM, 1X, IV
     Route: 042
     Dates: start: 20101214, end: 20101214

REACTIONS (4)
  - CARDIOVASCULAR INSUFFICIENCY [None]
  - CIRCULATORY COLLAPSE [None]
  - DRUG INTOLERANCE [None]
  - NAUSEA [None]
